FAERS Safety Report 9937927 (Version 1)
Quarter: 2014Q1

REPORT INFORMATION
  Report Type: Spontaneous
  Country: US (occurrence: US)
  Receive Date: 20140303
  Receipt Date: 20140303
  Transmission Date: 20141002
  Serious: No
  Sender: FDA-Public Use
  Company Number: US-BIOGENIDEC-2014BI016964

PATIENT
  Sex: Female
  Weight: 72 kg

DRUGS (10)
  1. TECFIDERA [Suspect]
     Indication: PRODUCT USED FOR UNKNOWN INDICATION
     Route: 048
  2. CYMBALTA [Concomitant]
  3. ZOLPIDEM [Concomitant]
  4. LIPITOR [Concomitant]
  5. TIZANIDINE [Concomitant]
  6. CARVEDILOL [Concomitant]
  7. LOSARTAN/HCT [Concomitant]
  8. HORIZANT [Concomitant]
  9. MIRAPEX [Concomitant]
  10. NUVIGIL [Concomitant]

REACTIONS (1)
  - Fatigue [Unknown]
